FAERS Safety Report 8375921-8 (Version None)
Quarter: 2012Q2

REPORT INFORMATION
  Report Type: 
  Country: None (occurrence: None)
  Receive Date: 20120522
  Receipt Date: 20120516
  Transmission Date: 20120825
  Serious: Yes (Other)
  Sender: FDA-Public Use
  Company Number: JP-SANOFI-AVENTIS-2012SA035491

PATIENT
  Age: 78 Year
  Sex: Female

DRUGS (2)
  1. SOLOSTAR [Suspect]
     Indication: DEVICE THERAPY
     Dates: start: 20120301
  2. LANTUS [Suspect]
     Route: 058
     Dates: start: 20120301

REACTIONS (1)
  - HAEMORRHAGE [None]
